FAERS Safety Report 24917371 (Version 1)
Quarter: 2025Q1

REPORT INFORMATION
  Report Type: Spontaneous
  Country: US (occurrence: None)
  Receive Date: 20250203
  Receipt Date: 20250203
  Transmission Date: 20250409
  Serious: Yes (Other)
  Sender: FDA-CTU
  Company Number: None

PATIENT
  Age: 31 Year
  Sex: Female
  Weight: 101.9 kg

DRUGS (1)
  1. BUPRENORPHINE [Suspect]
     Active Substance: BUPRENORPHINE
     Indication: Drug use disorder
     Dosage: FREQUENCY : MONTHLY;?
     Route: 058

REACTIONS (3)
  - Therapy interrupted [None]
  - Withdrawal syndrome [None]
  - Rhinorrhoea [None]

NARRATIVE: CASE EVENT DATE: 20250131
